FAERS Safety Report 15645315 (Version 1)
Quarter: 2018Q4

REPORT INFORMATION
  Report Type: Spontaneous
  Country: JP (occurrence: JP)
  Receive Date: 20181121
  Receipt Date: 20181121
  Transmission Date: 20190205
  Serious: Yes (Other)
  Sender: FDA-Public Use
  Company Number: JP-PFIZER INC-2018472412

PATIENT

DRUGS (1)
  1. GENOTROPIN TC [Suspect]
     Active Substance: SOMATROPIN
     Dosage: UNK

REACTIONS (3)
  - Growth retardation [Unknown]
  - Underdose [Unknown]
  - Wrong technique in device usage process [Unknown]
